FAERS Safety Report 15710692 (Version 1)
Quarter: 2018Q4

REPORT INFORMATION
  Report Type: Report from Study
  Country: EC (occurrence: EC)
  Receive Date: 20181211
  Receipt Date: 20181211
  Transmission Date: 20190205
  Serious: Yes (Other)
  Sender: FDA-Public Use
  Company Number: EC-SAKK-2018SA286270AA

PATIENT
  Age: 66 Year
  Sex: Male

DRUGS (1)
  1. INSULIN GLARGINE [Suspect]
     Active Substance: INSULIN GLARGINE
     Indication: DIABETES MELLITUS
     Dosage: 8 IU, QD
     Route: 058
     Dates: start: 2014

REACTIONS (3)
  - Hyperglycaemia [Recovered/Resolved]
  - Product use issue [Unknown]
  - Dialysis [Unknown]

NARRATIVE: CASE EVENT DATE: 2014
